FAERS Safety Report 17714413 (Version 3)
Quarter: 2022Q1

REPORT INFORMATION
  Report Type: Spontaneous
  Country: ES (occurrence: ES)
  Receive Date: 20200427
  Receipt Date: 20220125
  Transmission Date: 20220423
  Serious: Yes (Other)
  Sender: FDA-Public Use
  Company Number: ES-MLMSERVICE-20200416-2262310-1

PATIENT
  Age: 38 Year
  Sex: Male

DRUGS (20)
  1. RISPERDAL [Suspect]
     Active Substance: RISPERIDONE
     Indication: Persecutory delusion
     Dosage: UNTIL 3 MG/DAY
     Route: 065
  2. RISPERDAL [Suspect]
     Active Substance: RISPERIDONE
     Indication: Psychotic symptom
     Route: 065
  3. RISPERDAL [Suspect]
     Active Substance: RISPERIDONE
     Indication: Restlessness
  4. RISPERDAL [Suspect]
     Active Substance: RISPERIDONE
     Indication: Hallucination
  5. RISPERDAL [Suspect]
     Active Substance: RISPERIDONE
     Indication: Hallucination, auditory
  6. RISPERDAL [Suspect]
     Active Substance: RISPERIDONE
     Indication: Irritability
  7. RISPERDAL [Suspect]
     Active Substance: RISPERIDONE
     Indication: Substance-induced psychotic disorder
  8. INVEGA [Suspect]
     Active Substance: PALIPERIDONE
     Indication: Bipolar I disorder
     Dosage: UNTIL 6 MG/DAY
     Route: 065
  9. INVEGA [Suspect]
     Active Substance: PALIPERIDONE
     Indication: Mania
  10. INVEGA [Suspect]
     Active Substance: PALIPERIDONE
     Indication: Schizophrenia
  11. INVEGA [Suspect]
     Active Substance: PALIPERIDONE
     Indication: Schizoaffective disorder
  12. INVEGA [Suspect]
     Active Substance: PALIPERIDONE
     Indication: Bipolar I disorder
  13. INVEGA [Suspect]
     Active Substance: PALIPERIDONE
     Indication: Substance-induced psychotic disorder
  14. PREGABALIN [Suspect]
     Active Substance: PREGABALIN
     Indication: Anxiety disorder
     Dosage: PREGABALIN HAS BEEN PRESCRIBED IN SOME PERIODS?150 MILLIGRAM DAILY
     Route: 065
  15. OLANZAPINE [Suspect]
     Active Substance: OLANZAPINE
     Indication: Substance-induced psychotic disorder
     Dosage: 15 MILLIGRAM DAILY
     Route: 065
  16. QUETIAPINE [Suspect]
     Active Substance: QUETIAPINE
     Indication: Substance-induced psychotic disorder
     Dosage: 250 MILLIGRAM DAILY
     Route: 065
  17. ASENAPINE [Suspect]
     Active Substance: ASENAPINE
     Indication: Substance-induced psychotic disorder
     Dosage: 10 MILLIGRAM DAILY
     Route: 065
  18. METHADONE [Concomitant]
     Active Substance: METHADONE HYDROCHLORIDE
     Indication: Substance use disorder
     Route: 065
  19. METHADONE [Concomitant]
     Active Substance: METHADONE HYDROCHLORIDE
     Indication: Substance-induced psychotic disorder
  20. PREGABALIN [Concomitant]
     Active Substance: PREGABALIN
     Indication: Anxiety disorder

REACTIONS (4)
  - Extrapyramidal disorder [Unknown]
  - Drug intolerance [Unknown]
  - Taste disorder [Recovered/Resolved]
  - Somnolence [Unknown]
